FAERS Safety Report 9260876 (Version 1)
Quarter: 2013Q2

REPORT INFORMATION
  Report Type: Spontaneous
  Country: US (occurrence: US)
  Receive Date: 20130429
  Receipt Date: 20130429
  Transmission Date: 20140414
  Serious: No
  Sender: FDA-Public Use
  Company Number: US-AMGEN-USASP2012017876

PATIENT
  Sex: Female

DRUGS (2)
  1. SENSIPAR [Suspect]
     Indication: PRODUCT USED FOR UNKNOWN INDICATION
     Dosage: 60 MG, QD
     Route: 048
  2. SENSIPAR [Suspect]
     Dosage: 30 MG, QD
     Route: 048
     Dates: end: 201202

REACTIONS (2)
  - Inner ear disorder [Not Recovered/Not Resolved]
  - Dizziness [Not Recovered/Not Resolved]
